FAERS Safety Report 16722741 (Version 1)
Quarter: 2019Q3

REPORT INFORMATION
  Report Type: Report from Study
  Country: None (occurrence: BR)
  Receive Date: 20190821
  Receipt Date: 20190821
  Transmission Date: 20191005
  Serious: Yes (Disabling, Other)
  Sender: FDA-Public Use
  Company Number: BR-ABBVIE-19K-020-2892742-00

PATIENT
  Sex: Female

DRUGS (1)
  1. HUMIRA [Suspect]
     Active Substance: ADALIMUMAB
     Indication: PSORIATIC ARTHROPATHY
     Route: 058
     Dates: start: 20190703

REACTIONS (3)
  - Musculoskeletal stiffness [Not Recovered/Not Resolved]
  - Impaired work ability [Not Recovered/Not Resolved]
  - Spinal pain [Not Recovered/Not Resolved]

NARRATIVE: CASE EVENT DATE: 2019
